FAERS Safety Report 7721408-2 (Version None)
Quarter: 2011Q3

REPORT INFORMATION
  Report Type: 
  Country: None (occurrence: None)
  Receive Date: 20110831
  Receipt Date: 20110706
  Transmission Date: 20111222
  Serious: Yes (Hospitalization)
  Sender: FDA-Public Use
  Company Number: JP-ROCHE-789437

PATIENT
  Age: 8 Year
  Sex: Female

DRUGS (4)
  1. VALGANCICLOVIR [Suspect]
     Route: 065
  2. CELLCEPT [Suspect]
     Route: 048
  3. VALGANCICLOVIR [Suspect]
     Route: 065
  4. CELLCEPT [Suspect]
     Route: 048

REACTIONS (3)
  - HEPATIC FUNCTION ABNORMAL [None]
  - CYTOMEGALOVIRUS INFECTION [None]
  - WHITE BLOOD CELL COUNT DECREASED [None]
